FAERS Safety Report 9096776 (Version 2)
Quarter: 2013Q1

REPORT INFORMATION
  Report Type: Spontaneous
  Country: SE (occurrence: SE)
  Receive Date: 20130211
  Receipt Date: 20130214
  Transmission Date: 20140127
  Serious: Yes (Other)
  Sender: FDA-Public Use
  Company Number: SE-VERTEX PHARMACEUTICALS INC.-2013-001841

PATIENT
  Age: 49 Year
  Sex: Male

DRUGS (1)
  1. INCIVO [Suspect]
     Indication: CHRONIC HEPATITIS C
     Route: 065
     Dates: end: 20120315

REACTIONS (1)
  - Rheumatoid arthritis [Unknown]
